FAERS Safety Report 13313416 (Version 1)
Quarter: 2017Q1

REPORT INFORMATION
  Report Type: Report from Study
  Country: JP (occurrence: JP)
  Receive Date: 20170309
  Receipt Date: 20170309
  Transmission Date: 20170428
  Serious: Yes (Death, Other)
  Sender: FDA-Public Use
  Company Number: JP-BRISTOL-MYERS SQUIBB COMPANY-BMS-2017-019861

PATIENT
  Age: 64 Year
  Sex: Male
  Weight: 56 kg

DRUGS (10)
  1. MEXILETINE [Concomitant]
     Active Substance: MEXILETINE
     Indication: VENTRICULAR EXTRASYSTOLES
     Dosage: 300 MG, QD
     Route: 048
     Dates: end: 20151228
  2. REBAMIPIDE [Concomitant]
     Active Substance: REBAMIPIDE
     Indication: CHRONIC GASTRITIS
     Dosage: 300 MG, QD
     Route: 048
     Dates: end: 20151228
  3. LIPIDIL [Concomitant]
     Active Substance: FENOFIBRATE
     Indication: DYSLIPIDAEMIA
     Dosage: 160 MG, QD
     Route: 048
     Dates: end: 20151228
  4. VASOLAN                            /00014302/ [Concomitant]
     Active Substance: VERAPAMIL HYDROCHLORIDE
     Indication: ADVERSE EVENT
     Dosage: 80 MG, QD
     Route: 048
     Dates: end: 20151228
  5. ISOMYTAL                           /00003001/ [Concomitant]
     Indication: INSOMNIA
     Dosage: 0.3 G, QD
     Route: 048
     Dates: end: 20151228
  6. APIXABAN [Suspect]
     Active Substance: APIXABAN
     Indication: CEREBROVASCULAR ACCIDENT PROPHYLAXIS
     Dosage: 5 MG, BID
     Route: 048
     Dates: start: 20140730, end: 20151224
  7. TRIAZOLAM. [Concomitant]
     Active Substance: TRIAZOLAM
     Indication: INSOMNIA
     Dosage: 0.25 MG, QD
     Route: 048
     Dates: end: 20151228
  8. BROVARIN [Concomitant]
     Indication: INSOMNIA
     Dosage: 0.3 G, QD
     Route: 048
     Dates: end: 20151228
  9. ASPIRIN                            /00002701/ [Concomitant]
     Active Substance: ASPIRIN
     Indication: THROMBOSIS PROPHYLAXIS
     Dosage: 100 MG, QD
     Route: 048
     Dates: end: 20151228
  10. ALLOPURINOL. [Concomitant]
     Active Substance: ALLOPURINOL
     Indication: HYPERURICAEMIA
     Dosage: 300 MG, QD
     Route: 048
     Dates: end: 20151228

REACTIONS (6)
  - Arterial occlusive disease [Unknown]
  - Thrombectomy [Unknown]
  - Treatment noncompliance [Unknown]
  - Embolism [Fatal]
  - Ventricular fibrillation [Unknown]
  - Cardioversion [Unknown]

NARRATIVE: CASE EVENT DATE: 20151228
